FAERS Safety Report 8538468-1 (Version None)
Quarter: 2012Q3

REPORT INFORMATION
  Report Type: 
  Country: None (occurrence: None)
  Receive Date: 20120718
  Receipt Date: 20120718
  Transmission Date: 20120928
  Serious: Yes (Hospitalization)
  Sender: FDA-Public Use
  Company Number: None

PATIENT
  Age: 73 Year
  Sex: Female
  Weight: 74.8435 kg

DRUGS (1)
  1. OXYBUTYNIN [Suspect]
     Indication: HYPERTONIC BLADDER
     Dosage: 10 MG ONCE A DAY MOUTH
     Route: 048
     Dates: start: 20120531, end: 20120611

REACTIONS (1)
  - URINARY RETENTION [None]
